FAERS Safety Report 10268785 (Version 1)
Quarter: 2014Q2

REPORT INFORMATION
  Report Type: Spontaneous
  Country: US (occurrence: US)
  Receive Date: 20140630
  Receipt Date: 20140630
  Transmission Date: 20141212
  Serious: Yes (Other)
  Sender: FDA-Public Use
  Company Number: US-GLAXOSMITHKLINE-A1077863A

PATIENT
  Age: 66 Year
  Sex: Female

DRUGS (3)
  1. VENTOLIN [Suspect]
     Indication: ASTHMA
     Dosage: 2PUFF TWICE PER DAY
     Route: 065
     Dates: start: 2010
  2. OXYGEN [Concomitant]
  3. SYMBICORT [Concomitant]

REACTIONS (4)
  - Gastritis [Recovering/Resolving]
  - Pancreatitis [Recovered/Resolved]
  - Nausea [Recovering/Resolving]
  - Fall [Unknown]
